FAERS Safety Report 4845787-9 (Version None)
Quarter: 2005Q4

REPORT INFORMATION
  Report Type: 
  Country: None (occurrence: None)
  Receive Date: 20051206
  Receipt Date: 20051129
  Transmission Date: 20060501
  Serious: Yes (Death)
  Sender: FDA-Public Use
  Company Number: US-BRISTOL-MYERS SQUIBB COMPANY-13197140

PATIENT
  Sex: Male
  Weight: 109 kg

DRUGS (1)
  1. COUMADIN [Suspect]
     Indication: CARDIAC FAILURE CONGESTIVE
     Dosage: DURATION OF THERAPY:  ^SEVERAL YEARS^

REACTIONS (1)
  - MYOCARDIAL INFARCTION [None]
